FAERS Safety Report 17845800 (Version 1)
Quarter: 2020Q2

REPORT INFORMATION
  Report Type: Spontaneous
  Country: US (occurrence: US)
  Receive Date: 20200531
  Receipt Date: 20200531
  Transmission Date: 20200714
  Serious: Yes (Hospitalization)
  Sender: FDA-Public Use
  Company Number: None

PATIENT
  Sex: Female

DRUGS (1)
  1. INLYTA [Suspect]
     Active Substance: AXITINIB
     Indication: ILL-DEFINED DISORDER
     Route: 048
     Dates: start: 20200307

REACTIONS (3)
  - Dizziness [None]
  - Rash [None]
  - Blood pressure increased [None]
